FAERS Safety Report 12155526 (Version 2)
Quarter: 2016Q2

REPORT INFORMATION
  Report Type: Spontaneous
  Country: DE (occurrence: DE)
  Receive Date: 20160307
  Receipt Date: 20160415
  Transmission Date: 20160815
  Serious: Yes (Hospitalization)
  Sender: FDA-Public Use
  Company Number: DE-IMPAX LABORATORIES, INC-2016-IPXL-00207

PATIENT
  Age: 63 Year
  Sex: Female

DRUGS (4)
  1. FILGRASTIM [Concomitant]
     Active Substance: FILGRASTIM
     Indication: PANCYTOPENIA
     Dosage: UNK
     Route: 065
  2. FOTEMUSTINE [Suspect]
     Active Substance: FOTEMUSTINE
     Indication: CHEMOTHERAPY
     Dosage: 100MG/M2 OF BODY SURFACE AREA, 13 DOSES
     Route: 065
     Dates: start: 201010, end: 201106
  3. DIVALPROEX SODIUM ER [Suspect]
     Active Substance: DIVALPROEX SODIUM
     Indication: SEIZURE
     Dosage: UNK
     Route: 065
  4. DARBEPOETIN ALFA [Concomitant]
     Active Substance: DARBEPOETIN ALFA
     Indication: PANCYTOPENIA
     Dosage: 13 DOSES
     Route: 065

REACTIONS (4)
  - Cognitive disorder [Recovered/Resolved]
  - Nervous system disorder [Recovered/Resolved]
  - Dementia [Recovered/Resolved]
  - Tremor [Recovered/Resolved]
